FAERS Safety Report 10896608 (Version 1)
Quarter: 2015Q1

REPORT INFORMATION
  Report Type: Spontaneous
  Country: US (occurrence: None)
  Receive Date: 20150302
  Receipt Date: 20150302
  Transmission Date: 20150721
  Serious: Yes (Disabling)
  Sender: FDA-Public Use
  Company Number: None

PATIENT
  Age: 53 Year
  Sex: Female
  Weight: 72.58 kg

DRUGS (1)
  1. VENLAFAXINE 75MG [Suspect]
     Active Substance: VENLAFAXINE HYDROCHLORIDE
     Indication: STRESS
     Dosage: 1 PILL, ONCE DAILY, TAKEN BY MOUTH
     Route: 048
     Dates: start: 20150102, end: 20150123

REACTIONS (11)
  - Abdominal pain upper [None]
  - Fatigue [None]
  - Irritable bowel syndrome [None]
  - Dyspepsia [None]
  - Feeling abnormal [None]
  - Screaming [None]
  - Pain [None]
  - Impaired driving ability [None]
  - Hyperhidrosis [None]
  - Dizziness postural [None]
  - Tinnitus [None]

NARRATIVE: CASE EVENT DATE: 20150102
